FAERS Safety Report 13254020 (Version 7)
Quarter: 2018Q1

REPORT INFORMATION
  Report Type: Report from Study
  Country: EC (occurrence: EC)
  Receive Date: 20170221
  Receipt Date: 20180110
  Transmission Date: 20180508
  Serious: Yes (Other)
  Sender: FDA-Public Use
  Company Number: EC-ROCHE-1845970

PATIENT
  Age: 50 Year
  Sex: Female

DRUGS (2)
  1. TAMOXIFEN [Concomitant]
     Active Substance: TAMOXIFEN
     Route: 065
  2. HERCEPTIN [Suspect]
     Active Substance: TRASTUZUMAB
     Indication: BREAST CANCER
     Route: 042
     Dates: start: 20160328, end: 20160504

REACTIONS (7)
  - Cardiac failure congestive [Not Recovered/Not Resolved]
  - Cardiotoxicity [Recovered/Resolved]
  - Cardiotoxicity [Not Recovered/Not Resolved]
  - Myocarditis [Not Recovered/Not Resolved]
  - Cardiac ventricular disorder [Recovering/Resolving]
  - Ill-defined disorder [Not Recovered/Not Resolved]
  - Cardiac disorder [Recovered/Resolved]

NARRATIVE: CASE EVENT DATE: 201604
